FAERS Safety Report 5788499-X (Version None)
Quarter: 2008Q2

REPORT INFORMATION
  Report Type: 
  Country: None (occurrence: None)
  Receive Date: 20080625
  Receipt Date: 20080625
  Transmission Date: 20081010
  Serious: No
  Sender: FDA-Public Use
  Company Number: None

PATIENT
  Age: 62 Year
  Sex: Female
  Weight: 63.5036 kg

DRUGS (1)
  1. EQUATE - MARCH 2009 - 7KA0847B [Suspect]
     Dosage: 1 DAILY
     Dates: start: 20080501

REACTIONS (3)
  - GLOSSITIS [None]
  - OROPHARYNGEAL BLISTERING [None]
  - PHARMACEUTICAL PRODUCT COMPLAINT [None]
